FAERS Safety Report 24555847 (Version 1)
Quarter: 2024Q4

REPORT INFORMATION
  Report Type: Spontaneous
  Country: US (occurrence: None)
  Receive Date: 20241025
  Receipt Date: 20241025
  Transmission Date: 20250115
  Serious: No
  Sender: Public
  Company Number: None

PATIENT
  Age: 44 Year
  Sex: Male

DRUGS (5)
  1. TRIAMCINOLONE [Suspect]
     Active Substance: TRIAMCINOLONE
     Indication: Tendonitis
     Dosage: FREQUENCY : AS NEEDED;?
     Dates: start: 20240909
  2. XYLOCAINE [Suspect]
     Active Substance: LIDOCAINE HYDROCHLORIDE
     Indication: Tendonitis
     Dosage: FREQUENCY : AS NEEDED;?
     Dates: start: 20240909
  3. CEPHALEXIN [Concomitant]
     Active Substance: CEPHALEXIN
  4. NAPROXEN [Concomitant]
     Active Substance: NAPROXEN
  5. CITALOPRAM [Concomitant]
     Active Substance: CITALOPRAM

REACTIONS (1)
  - Pain [None]

NARRATIVE: CASE EVENT DATE: 20240909
